FAERS Safety Report 11120775 (Version 1)
Quarter: 2015Q2

REPORT INFORMATION
  Report Type: Spontaneous
  Country: US (occurrence: US)
  Receive Date: 20150519
  Receipt Date: 20150519
  Transmission Date: 20150821
  Serious: No
  Sender: FDA-Public Use
  Company Number: US-BAYER-2015-243534

PATIENT
  Age: 86 Year
  Sex: Female
  Weight: 54.42 kg

DRUGS (5)
  1. NAMIFEN [Concomitant]
     Dosage: UNK
  2. CLARITIN [Suspect]
     Active Substance: LORATADINE
     Indication: LACRIMATION INCREASED
  3. TENORMIN [Concomitant]
     Active Substance: ATENOLOL
     Dosage: UNK
  4. TYLENOL [Concomitant]
     Active Substance: ACETAMINOPHEN
     Dosage: UNK
  5. CLARITIN [Suspect]
     Active Substance: LORATADINE
     Indication: EYE PRURITUS
     Dosage: 1 DF, PRN
     Route: 048
     Dates: start: 2011, end: 20150512

REACTIONS (1)
  - Face oedema [Unknown]
